FAERS Safety Report 25716450 (Version 1)
Quarter: 2025Q3

REPORT INFORMATION
  Report Type: Report from Study
  Country: CA (occurrence: CA)
  Receive Date: 20250822
  Receipt Date: 20250822
  Transmission Date: 20251021
  Serious: Yes (Other)
  Sender: TAKEDA
  Company Number: CA-TAKEDA-2025TUS073612

PATIENT
  Sex: Male

DRUGS (3)
  1. VEDOLIZUMAB [Suspect]
     Active Substance: VEDOLIZUMAB
     Indication: Crohn^s disease
  2. HUMIRA [Concomitant]
     Active Substance: ADALIMUMAB
  3. COLESEVELAM HYDROCHLORIDE [Concomitant]
     Active Substance: COLESEVELAM HYDROCHLORIDE

REACTIONS (3)
  - Diverticulitis [Recovered/Resolved]
  - Glucose tolerance impaired [Not Recovered/Not Resolved]
  - Diverticulum intestinal [Recovered/Resolved]
